FAERS Safety Report 4349670-7 (Version None)
Quarter: 2004Q1

REPORT INFORMATION
  Report Type: 
  Country: None (occurrence: None)
  Receive Date: 20040329
  Receipt Date: 20040121
  Transmission Date: 20041129
  Serious: No
  Sender: FDA-Public Use
  Company Number: USA040157234

PATIENT
  Age: 35 Year
  Sex: Male
  Weight: 118 kg

DRUGS (2)
  1. STRATTERA [Suspect]
     Indication: ATTENTION DEFICIT/HYPERACTIVITY DISORDER
     Dosage: 40 MG/DAY
     Dates: start: 20031201
  2. WELLBUTRIN [Concomitant]

REACTIONS (3)
  - INSOMNIA [None]
  - LIGAMENT REPAIR [None]
  - MIDDLE INSOMNIA [None]
